FAERS Safety Report 9825238 (Version 1)
Quarter: 2014Q1

REPORT INFORMATION
  Report Type: Spontaneous
  Country: US (occurrence: None)
  Receive Date: 20140115
  Receipt Date: 20140115
  Transmission Date: 20141002
  Serious: Yes (Hospitalization)
  Sender: FDA-Public Use
  Company Number: None

PATIENT
  Age: 69 Year
  Sex: Male
  Weight: 89.1 kg

DRUGS (3)
  1. CETUXIMAB [Suspect]
     Indication: HEAD AND NECK CANCER
     Route: 042
     Dates: start: 20131028, end: 20131223
  2. RADIATION THERAPY [Concomitant]
  3. EGFR ANTISENSE DNA INTRATUMORAL INJECTIONS [Concomitant]

REACTIONS (4)
  - Dermatitis acneiform [None]
  - Parotitis [None]
  - Blood creatinine increased [None]
  - Anxiety [None]
